FAERS Safety Report 18413012 (Version 1)
Quarter: 2020Q4

REPORT INFORMATION
  Report Type: Spontaneous
  Country: SI (occurrence: SI)
  Receive Date: 20201021
  Receipt Date: 20201021
  Transmission Date: 20210114
  Serious: Yes (Other)
  Sender: FDA-Public Use
  Company Number: SI-US-PROVELL PHARMACEUTICALS LLC-9193681

PATIENT
  Sex: Female

DRUGS (2)
  1. EUTHYROX [Suspect]
     Active Substance: LEVOTHYROXINE SODIUM
     Indication: HYPOTHYROIDISM
     Dosage: UNSPECIFIED DOSE
  2. EUTHYROX [Suspect]
     Active Substance: LEVOTHYROXINE SODIUM
     Dosage: HAD DOSE ADJUSTMENTS (UNSPECIFIED) OVER YEARS

REACTIONS (4)
  - Adrenal insufficiency [Unknown]
  - Menopause [Unknown]
  - Hyperthyroidism [Unknown]
  - Dizziness [Recovering/Resolving]
